FAERS Safety Report 19128325 (Version 1)
Quarter: 2021Q2

REPORT INFORMATION
  Report Type: Spontaneous
  Country: US (occurrence: US)
  Receive Date: 20210413
  Receipt Date: 20210413
  Transmission Date: 20210717
  Serious: No
  Sender: FDA-Public Use
  Company Number: US-MYLANLABS-2021M1020518

PATIENT
  Sex: Female
  Weight: 59 kg

DRUGS (1)
  1. ESTRADIOL VAGINAL CREAM USP [Suspect]
     Active Substance: ESTRADIOL
     Indication: HORMONE REPLACEMENT THERAPY
     Dosage: 0.4 GRAM, Q2W (0.4 G APPLIED TWICE A WEEK)
     Route: 067
     Dates: start: 202005

REACTIONS (2)
  - Malaise [Not Recovered/Not Resolved]
  - Device difficult to use [Not Recovered/Not Resolved]
